FAERS Safety Report 12306066 (Version 2)
Quarter: 2016Q2

REPORT INFORMATION
  Report Type: Spontaneous
  Country: US (occurrence: US)
  Receive Date: 20160426
  Receipt Date: 20160520
  Transmission Date: 20160815
  Serious: Yes (Life-Threatening, Hospitalization, Other)
  Sender: FDA-Public Use
  Company Number: US-ALEXION PHARMACEUTICALS INC-A201602898

PATIENT
  Age: 68 Year
  Sex: Male

DRUGS (1)
  1. SOLIRIS [Suspect]
     Active Substance: ECULIZUMAB
     Indication: HAEMOLYTIC URAEMIC SYNDROME
     Dosage: 900 MG, QW
     Route: 042

REACTIONS (4)
  - Heart rate irregular [Not Recovered/Not Resolved]
  - Atrial fibrillation [Not Recovered/Not Resolved]
  - Cardio-respiratory arrest [Not Recovered/Not Resolved]
  - Thrombosis [Unknown]

NARRATIVE: CASE EVENT DATE: 20160415
